FAERS Safety Report 18038032 (Version 1)
Quarter: 2020Q3

REPORT INFORMATION
  Report Type: Spontaneous
  Country: US (occurrence: US)
  Receive Date: 20200717
  Receipt Date: 20200717
  Transmission Date: 20201103
  Serious: No
  Sender: FDA-Public Use
  Company Number: US-SUNOVION-2020SUN002025

PATIENT
  Age: 15 Year

DRUGS (1)
  1. LATUDA [Suspect]
     Active Substance: LURASIDONE HYDROCHLORIDE
     Indication: BIPOLAR DISORDER
     Dosage: 60 MG UNK
     Route: 048

REACTIONS (5)
  - Nausea [Unknown]
  - Anxiety [Unknown]
  - Irritability [Unknown]
  - Drug ineffective [Unknown]
  - Vomiting [Unknown]
